FAERS Safety Report 5761402-4 (Version None)
Quarter: 2008Q2

REPORT INFORMATION
  Report Type: 
  Country: None (occurrence: None)
  Receive Date: 20080606
  Receipt Date: 20080605
  Transmission Date: 20081010
  Serious: Yes (Hospitalization)
  Sender: FDA-Public Use
  Company Number: JP-SANOFI-SYNTHELABO-F01200800919

PATIENT
  Sex: Male
  Weight: 62 kg

DRUGS (6)
  1. URIEF CAPSULE [Concomitant]
     Indication: URINARY TRACT DISORDER
     Dosage: ADEQUATE DOSE 8 G
     Route: 048
     Dates: start: 20080124, end: 20080527
  2. FULTAIDE [Concomitant]
     Indication: ASTHMA
     Dosage: ADEQUATE DOSE
     Route: 065
  3. MELBIN [Concomitant]
     Indication: DIABETES MELLITUS
     Dosage: 500 MG
     Route: 048
     Dates: end: 20080527
  4. MUCODYNE [Concomitant]
     Indication: ASTHMA
     Dosage: 1500 MG
     Route: 048
     Dates: end: 20080527
  5. CLOPIDOGREL [Suspect]
     Indication: CEREBRAL INFARCTION
     Dosage: 50MG/75 MG : BLIND
     Route: 048
     Dates: start: 20070611, end: 20080527
  6. CELESTAMINE TAB [Concomitant]
     Indication: ASTHMA
     Dosage: 1 DF
     Route: 048
     Dates: end: 20080527

REACTIONS (2)
  - CHOLECYSTITIS ACUTE [None]
  - SEPSIS [None]
